FAERS Safety Report 9073000 (Version 1)
Quarter: 2013Q1

REPORT INFORMATION
  Report Type: Report from Study
  Country: US (occurrence: US)
  Receive Date: 20130128
  Receipt Date: 20130128
  Transmission Date: 20140127
  Serious: No
  Sender: FDA-Public Use
  Company Number: US-ABBOTT-12P-163-0917282-00

PATIENT
  Age: 33 None
  Sex: Female

DRUGS (1)
  1. HUMIRA 40 MG/0.8 ML PEN [Suspect]
     Indication: PSORIASIS
     Route: 058
     Dates: start: 20111101

REACTIONS (5)
  - Papule [Unknown]
  - Headache [Unknown]
  - Nasal discomfort [Unknown]
  - Nasal discomfort [Unknown]
  - Epistaxis [Unknown]
